FAERS Safety Report 15592801 (Version 1)
Quarter: 2018Q4

REPORT INFORMATION
  Report Type: Spontaneous
  Country: CN (occurrence: CN)
  Receive Date: 20181107
  Receipt Date: 20181107
  Transmission Date: 20190205
  Serious: Yes (Other)
  Sender: FDA-Public Use
  Company Number: CN-DSJP-DSJ-2018-147281

PATIENT

DRUGS (4)
  1. OLMESARTAN MEDOXOMIL; HYDROCHLOROTHIAZIDE [Suspect]
     Active Substance: HYDROCHLOROTHIAZIDE\OLMESARTAN MEDOXOMIL
     Indication: HYPERTENSION
     Dosage: 20/12.5 MG, QD
     Route: 048
     Dates: start: 20180903, end: 20180921
  2. TRIMETAZIDINE DIHYDROCHLORIDE [Concomitant]
     Active Substance: TRIMETAZIDINE DIHYDROCHLORIDE
     Indication: MYOCARDIAL ISCHAEMIA
     Dosage: 35 MG, BID
     Route: 065
     Dates: start: 20180903, end: 20180922
  3. DANLOU PIAN ?TCM? [Concomitant]
     Indication: RETINAL VASCULAR DISORDER
     Dosage: 1.5 G, TID
     Route: 065
     Dates: start: 20180903, end: 20180921
  4. ASPIRIN                            /00002701/ [Concomitant]
     Active Substance: ASPIRIN
     Indication: PROPHYLAXIS
     Dosage: 100 MG, QD
     Route: 065
     Dates: start: 20180903, end: 20180921

REACTIONS (2)
  - Blood sodium decreased [Recovering/Resolving]
  - Hypokalaemia [Recovering/Resolving]

NARRATIVE: CASE EVENT DATE: 20180921
